FAERS Safety Report 6605095-2 (Version None)
Quarter: 2010Q1

REPORT INFORMATION
  Report Type: 
  Country: None (occurrence: None)
  Receive Date: 20100226
  Receipt Date: 20100217
  Transmission Date: 20100710
  Serious: Yes (Death)
  Sender: FDA-Public Use
  Company Number: GXKR2010GB01279

PATIENT
  Age: 27 Year
  Sex: Female

DRUGS (5)
  1. AMOXICILLIN [Suspect]
     Indication: PYREXIA
     Dosage: 500 MG, UNK
     Route: 065
  2. AMOXICILLIN [Suspect]
     Indication: MALAISE
  3. MINOCYCLINE HCL [Suspect]
     Indication: SKIN IRRITATION
     Dosage: 100 MG, QD
     Route: 065
     Dates: start: 20080528, end: 20080616
  4. MINOCYCLINE HCL [Suspect]
     Indication: ACNE
  5. ZINERYT [Concomitant]
     Indication: ACNE
     Dosage: UNK
     Route: 065
     Dates: start: 20080509

REACTIONS (21)
  - ABDOMINAL PAIN [None]
  - ACIDOSIS [None]
  - ACUTE HEPATIC FAILURE [None]
  - ARTHRALGIA [None]
  - CHEST PAIN [None]
  - DIARRHOEA [None]
  - DRUG HYPERSENSITIVITY [None]
  - DYSPNOEA [None]
  - FATIGUE [None]
  - FEELING HOT [None]
  - HAEMOPTYSIS [None]
  - HEADACHE [None]
  - HEPATIC NECROSIS [None]
  - LIVER TRANSPLANT [None]
  - MULTI-ORGAN FAILURE [None]
  - MYALGIA [None]
  - PRURITUS [None]
  - PYREXIA [None]
  - RASH [None]
  - VIRAL INFECTION [None]
  - VOMITING [None]
